FAERS Safety Report 8365412-2 (Version None)
Quarter: 2012Q2

REPORT INFORMATION
  Report Type: 
  Country: None (occurrence: None)
  Receive Date: 20120516
  Receipt Date: 20120514
  Transmission Date: 20120825
  Serious: Yes (Life-Threatening, Hospitalization)
  Sender: FDA-Public Use
  Company Number: JP-B.I. PHARMACEUTICALS,INC./RIDGEFIELD-2011-DE-00744GD

PATIENT
  Sex: Male
  Weight: 57 kg

DRUGS (11)
  1. TAMSULOSIN HCL [Concomitant]
     Dosage: 0.2 MG
  2. MOBIC [Suspect]
     Indication: ARTHRALGIA
     Dosage: 10 MG
     Route: 048
     Dates: start: 20050101, end: 20071221
  3. DEPAS [Concomitant]
     Dosage: 1DF
  4. MUCOSTA [Concomitant]
     Dosage: 100 MG
  5. ASPIRIN [Suspect]
     Dosage: 100 MG
  6. COROHERSER-R [Concomitant]
     Dosage: 100 MG
  7. PENTAZOCINE LACTATE [Concomitant]
     Dates: start: 20071221, end: 20071221
  8. HALCION [Concomitant]
     Dosage: 0.5 MG
  9. METFORMIN HCL [Concomitant]
     Dosage: 500 MG
  10. MIDAZOLAM HCL [Concomitant]
     Dates: start: 20071221, end: 20071221
  11. ENALAPRIL MALEATE [Concomitant]
     Dosage: 10 MG

REACTIONS (3)
  - ANAEMIA [None]
  - SMALL INTESTINAL STENOSIS [None]
  - HAEMATOCHEZIA [None]
